FAERS Safety Report 19817092 (Version 3)
Quarter: 2021Q4

REPORT INFORMATION
  Report Type: Spontaneous
  Country: US (occurrence: US)
  Receive Date: 20210910
  Receipt Date: 20211206
  Transmission Date: 20220303
  Serious: Yes (Other)
  Sender: FDA-Public Use
  Company Number: US-PFIZER INC-202101034690

PATIENT
  Age: 83 Year
  Sex: Male
  Weight: 106.59 kg

DRUGS (4)
  1. LATANOPROST [Suspect]
     Active Substance: LATANOPROST
     Indication: Glaucoma
     Dosage: 1 DROP, 1X/DAY
     Dates: start: 2021
  2. LATANOPROST [Suspect]
     Active Substance: LATANOPROST
     Dosage: 2 DROP, 1X/DAY (1 DROP PER EYE NIGHTLY)
     Dates: start: 202103
  3. LATANOPROST [Suspect]
     Active Substance: LATANOPROST
     Dosage: 2 DROP, 1X/DAY (1 DROP PER EYE NIGHTLY)
     Route: 047
     Dates: start: 202103
  4. ATORVASTATIN CALCIUM [Concomitant]
     Active Substance: ATORVASTATIN CALCIUM
     Indication: Macular degeneration
     Dosage: UNK
     Dates: start: 20210903

REACTIONS (3)
  - Macular degeneration [Not Recovered/Not Resolved]
  - Eye discharge [Not Recovered/Not Resolved]
  - Iris disorder [Not Recovered/Not Resolved]

NARRATIVE: CASE EVENT DATE: 20210101
